FAERS Safety Report 9660997 (Version 2)
Quarter: 2013Q4

REPORT INFORMATION
  Report Type: Spontaneous
  Country: GB (occurrence: GB)
  Receive Date: 20131031
  Receipt Date: 20131031
  Transmission Date: 20140711
  Serious: Yes (Disabling)
  Sender: FDA-Public Use
  Company Number: GB-WATSON-2013-19888

PATIENT
  Age: 40 Year
  Sex: Female
  Weight: 63 kg

DRUGS (2)
  1. CHLORPHENAMINE (UNKNOWN) [Suspect]
     Indication: SLEEP DISORDER
     Dosage: UNK
     Route: 065
     Dates: start: 20130312, end: 20130312
  2. CETIRIZINE [Concomitant]
     Indication: URTICARIA
     Dosage: UNK
     Route: 065
     Dates: start: 20130305

REACTIONS (1)
  - Lip swelling [Recovered/Resolved]
